FAERS Safety Report 14092422 (Version 1)
Quarter: 2017Q4

REPORT INFORMATION
  Report Type: Spontaneous
  Country: AU (occurrence: AU)
  Receive Date: 20171016
  Receipt Date: 20171016
  Transmission Date: 20180321
  Serious: Yes (Hospitalization)
  Sender: FDA-Public Use
  Company Number: AU-ASTELLAS-2017US041136

PATIENT
  Age: 69 Year
  Sex: Female
  Weight: 58 kg

DRUGS (11)
  1. AVANZA [Concomitant]
     Active Substance: MIRTAZAPINE
     Indication: DECREASED APPETITE
  2. AVANZA [Concomitant]
     Active Substance: MIRTAZAPINE
     Indication: INSOMNIA
  3. VESICARE [Concomitant]
     Active Substance: SOLIFENACIN SUCCINATE
     Indication: URINARY INCONTINENCE
     Dosage: 5 MG (DAILY DOSE), UNKNOWN FREQ.
     Route: 065
     Dates: start: 20161001
  4. LEXAPRO [Concomitant]
     Active Substance: ESCITALOPRAM OXALATE
     Indication: MAJOR DEPRESSION
     Dosage: 20 MG (DAILY DOSE), UNKNOWN FREQ.
     Route: 065
     Dates: start: 2015
  5. CRESTOR [Concomitant]
     Active Substance: ROSUVASTATIN CALCIUM
     Indication: HYPERCHOLESTEROLAEMIA
     Dosage: 10 MG (DAILY DOSE), UNKNOWN FREQ.
     Route: 065
     Dates: start: 2015
  6. BETMIGA [Suspect]
     Active Substance: MIRABEGRON
     Indication: URINARY INCONTINENCE
     Route: 065
     Dates: start: 20161001, end: 20170818
  7. LEXAPRO [Concomitant]
     Active Substance: ESCITALOPRAM OXALATE
     Indication: OBSESSIVE-COMPULSIVE DISORDER
  8. AVANZA [Concomitant]
     Active Substance: MIRTAZAPINE
     Indication: MAJOR DEPRESSION
     Dosage: 15 MG (DAILY DOSE), UNKNOWN FREQ.
     Route: 065
     Dates: start: 20170712
  9. QUILONUM                           /00033702/ [Concomitant]
     Active Substance: LITHIUM CARBONATE
     Indication: BIPOLAR DISORDER
     Dosage: 450 MG (DAILY DOSE), UNKNOWN FREQ.
     Route: 065
     Dates: start: 2014
  10. NALTREXONE [Concomitant]
     Active Substance: NALTREXONE
     Indication: ALCOHOL ABUSE
     Dosage: 50 MG (DAILY DOSE), UNKNOWN FREQ.
     Route: 065
     Dates: start: 20170522, end: 20170616
  11. OROXINE [Concomitant]
     Active Substance: LEVOTHYROXINE SODIUM
     Indication: HYPOTHYROIDISM
     Dosage: 125 ?G (DAILY DOSE), UNKNOWN FREQ.
     Route: 065
     Dates: start: 2014

REACTIONS (5)
  - Loss of personal independence in daily activities [Recovered/Resolved]
  - Muscular weakness [Recovered/Resolved]
  - Muscle atrophy [Recovered/Resolved]
  - Weight decreased [Recovered/Resolved]
  - Decreased appetite [Recovered/Resolved]

NARRATIVE: CASE EVENT DATE: 201610
